FAERS Safety Report 8617550-4 (Version None)
Quarter: 2012Q3

REPORT INFORMATION
  Report Type: 
  Country: None (occurrence: None)
  Receive Date: 20120824
  Receipt Date: 20120813
  Transmission Date: 20120928
  Serious: Yes (Life-Threatening, Hospitalization)
  Sender: FDA-Public Use
  Company Number: FR-BRISTOL-MYERS SQUIBB COMPANY-16861197

PATIENT
  Age: 53 Year
  Sex: Female

DRUGS (7)
  1. PREDNISONE TAB [Suspect]
     Dosage: 20 MG (PREDNISONE) 1/D OR 1.5/D
     Dates: end: 20120701
  2. ATORVASTATIN [Concomitant]
  3. FOSAVANCE [Concomitant]
  4. METFORMIN HCL [Concomitant]
  5. ORENCIA [Suspect]
     Dosage: 250 MG POWDER CONCENTRATE FOR SOLUTION FOR INFUSION
     Route: 042
     Dates: start: 20120301, end: 20120630
  6. HUMIRA [Suspect]
     Dates: start: 20090101
  7. NEXIUM [Concomitant]

REACTIONS (3)
  - PROGRESSIVE MULTIFOCAL LEUKOENCEPHALOPATHY [None]
  - CARDIAC TAMPONADE [None]
  - PERICARDITIS [None]
